FAERS Safety Report 5014315-X (Version None)
Quarter: 2006Q2

REPORT INFORMATION
  Report Type: 
  Country: None (occurrence: None)
  Receive Date: 20060414
  Receipt Date: 20060112
  Transmission Date: 20061013
  Serious: No
  Sender: FDA-Public Use
  Company Number: 2005SP003887

PATIENT
  Age: 76 Year
  Sex: Male
  Weight: 104.3273 kg

DRUGS (13)
  1. LUNESTA [Suspect]
     Indication: INSOMNIA
     Dosage: 2 MG; ORAL
     Route: 048
     Dates: start: 20051101
  2. ATENOLOL [Concomitant]
  3. SIMVASTATIN [Concomitant]
  4. PLAVIX [Concomitant]
  5. CELEBREX [Concomitant]
  6. NEXIUM [Concomitant]
  7. VICODIN [Concomitant]
  8. GLUCOTROL [Concomitant]
  9. IMDUR [Concomitant]
  10. LISINOPRIL [Concomitant]
  11. PERCOCET [Concomitant]
  12. GABAPENTIN [Concomitant]
  13. ACETYLSALICYLIC ACID SRT [Concomitant]

REACTIONS (1)
  - MIDDLE INSOMNIA [None]
